FAERS Safety Report 9905993 (Version 1)
Quarter: 2013Q2

REPORT INFORMATION
  Report Type: Spontaneous
  Country: US (occurrence: None)
  Receive Date: 20130305
  Receipt Date: 20130305
  Transmission Date: 20140414
  Serious: Yes (Other)
  Sender: FDA-Public Use
  Company Number: 163-21880-12041828

PATIENT
  Age: 70 Year
  Sex: Male

DRUGS (17)
  1. REVLIMID [Suspect]
     Indication: PLASMA CELL MYELOMA
     Route: 048
     Dates: start: 20100128
  2. LORCET PLUS (VICODIN) [Concomitant]
  3. VITAMIN B12 (CYANOCOBALAMIN) [Concomitant]
  4. CYMBALTA (DULOXETINE HYDROCHLORIDE) [Concomitant]
  5. KLONOPIN (CLONAZEPAM) (TABLETS) [Concomitant]
  6. B6 (PYRIDOXINE HYDROCHLORIDE) [Concomitant]
  7. ASA (ACETYLSALICYLIC ACID) [Concomitant]
  8. B COMPLEX (BECOSYM FORTE) [Concomitant]
  9. COLACE [Concomitant]
  10. DEXAMETHASONE [Concomitant]
  11. ROCEPHIN (CEFRIAXONE SODIUM) [Concomitant]
  12. AMOXICILLIN [Concomitant]
  13. RYNED [Concomitant]
  14. HCTZ (HYDROCHLORTHIAZIDE) [Concomitant]
  15. AUGMENTIN (CLAVULIN) [Concomitant]
  16. KEFLEX (CEFALEXIN MONOHYDRATE) [Concomitant]
  17. CEPHALEXIN [Concomitant]

REACTIONS (1)
  - Full blood count decreased [None]
